FAERS Safety Report 12618588 (Version 1)
Quarter: 2016Q3

REPORT INFORMATION
  Report Type: Spontaneous
  Country: US (occurrence: US)
  Receive Date: 20160803
  Receipt Date: 20160803
  Transmission Date: 20161109
  Serious: Yes (Other)
  Sender: FDA-Public Use
  Company Number: US-VELOXIS PHARMACEUTICALS-1055812

PATIENT
  Age: 36 Year
  Sex: Male

DRUGS (1)
  1. ENVARSUS XR [Suspect]
     Active Substance: TACROLIMUS

REACTIONS (3)
  - Hydronephrosis [Unknown]
  - Acute kidney injury [Recovered/Resolved]
  - BK virus infection [Recovered/Resolved]
